FAERS Safety Report 11820106 (Version 4)
Quarter: 2018Q2

REPORT INFORMATION
  Report Type: Report from Study
  Country: US (occurrence: US)
  Receive Date: 20151210
  Receipt Date: 20180528
  Transmission Date: 20180711
  Serious: Yes (Hospitalization)
  Sender: FDA-Public Use
  Company Number: PHHY2014US103901

PATIENT
  Age: 68 Year
  Sex: Female
  Weight: 71 kg

DRUGS (4)
  1. POTASSIUM CHLORIDE. [Concomitant]
     Active Substance: POTASSIUM CHLORIDE
     Indication: HYPERTENSION
     Dosage: 10 MEQ, UNK
     Route: 042
     Dates: start: 20140813
  2. GILENYA [Suspect]
     Active Substance: FINGOLIMOD HYDROCHLORIDE
     Dosage: 1 DF, QD
     Route: 048
  3. LOSARTAN. [Concomitant]
     Active Substance: LOSARTAN
     Indication: HYPERTENSION
     Route: 048
     Dates: start: 20140813
  4. GILENYA [Suspect]
     Active Substance: FINGOLIMOD HYDROCHLORIDE
     Indication: MULTIPLE SCLEROSIS
     Dosage: QD (TAKEN WITH LIQUID)
     Route: 048
     Dates: start: 20140721, end: 20140815

REACTIONS (11)
  - Multiple sclerosis [Not Recovered/Not Resolved]
  - Visual impairment [Unknown]
  - Back pain [Recovered/Resolved]
  - Hypertension [Unknown]
  - Constipation [Recovered/Resolved]
  - Uterine enlargement [Unknown]
  - Hypernatraemia [Recovered/Resolved]
  - Muscle spasms [Unknown]
  - Blood glucose increased [Unknown]
  - Asthenia [Unknown]
  - Urinary tract infection [Recovered/Resolved]

NARRATIVE: CASE EVENT DATE: 20140721
